FAERS Safety Report 20407736 (Version 3)
Quarter: 2022Q2

REPORT INFORMATION
  Report Type: Spontaneous
  Country: JP (occurrence: JP)
  Receive Date: 20220131
  Receipt Date: 20220401
  Transmission Date: 20220721
  Serious: Yes (Disabling, Other)
  Sender: FDA-Public Use
  Company Number: JP-NOVARTISPH-NVSJ2022JP002026

PATIENT
  Age: 85 Year
  Sex: Male

DRUGS (2)
  1. BEOVU [Suspect]
     Active Substance: BROLUCIZUMAB-DBLL
     Indication: Neovascular age-related macular degeneration
     Dosage: 6 MG,RIGHT EYE
     Route: 031
     Dates: start: 20220118, end: 20220118
  2. GATIFLOXACIN [Concomitant]
     Active Substance: GATIFLOXACIN
     Indication: Product used for unknown indication
     Dosage: UNK, TID
     Route: 065
     Dates: start: 20220118

REACTIONS (2)
  - Corneal exfoliation [Recovered/Resolved]
  - Blindness transient [Recovered/Resolved]

NARRATIVE: CASE EVENT DATE: 20220119
